FAERS Safety Report 6377565-6 (Version None)
Quarter: 2009Q3

REPORT INFORMATION
  Report Type: 
  Country: None (occurrence: None)
  Receive Date: 20090925
  Receipt Date: 20090915
  Transmission Date: 20100115
  Serious: Yes (Hospitalization, Disabling)
  Sender: FDA-Public Use
  Company Number: BE-ABBOTT-09P-013-0588713-00

PATIENT
  Sex: Male

DRUGS (5)
  1. HUMIRA [Suspect]
     Indication: RHEUMATOID ARTHRITIS
     Route: 058
     Dates: start: 20090112, end: 20090518
  2. PREDNISOLONE [Concomitant]
     Indication: DRUG USE FOR UNKNOWN INDICATION
  3. MOBIC [Concomitant]
     Indication: DRUG USE FOR UNKNOWN INDICATION
  4. ZALDIAR [Concomitant]
     Indication: DRUG USE FOR UNKNOWN INDICATION
  5. LEVOTHYROXINE SODIUM [Concomitant]
     Indication: DRUG USE FOR UNKNOWN INDICATION

REACTIONS (9)
  - ARRHYTHMIA [None]
  - CEREBRAL INFARCTION [None]
  - COGNITIVE DISORDER [None]
  - DRUG INEFFECTIVE [None]
  - GENERAL PHYSICAL CONDITION ABNORMAL [None]
  - INFLAMMATION [None]
  - MICROGRAPHIA [None]
  - SUPRAVENTRICULAR TACHYCARDIA [None]
  - TREMOR [None]
